FAERS Safety Report 4923221-8 (Version None)
Quarter: 2006Q1

REPORT INFORMATION
  Report Type: 
  Country: None (occurrence: None)
  Receive Date: 20060127
  Receipt Date: 20051010
  Transmission Date: 20060701
  Serious: Yes (Other)
  Sender: FDA-Public Use
  Company Number: 2005141143

PATIENT
  Age: 78 Year
  Sex: Male
  Weight: 70.3075 kg

DRUGS (10)
  1. LYRICA [Suspect]
     Indication: NEUROPATHY
     Dosage: 100 MG (50 MG 2 IN 1 D) ORAL
     Route: 048
     Dates: start: 20051008
  2. CYMBALTA [Concomitant]
  3. CAPTOPRIL [Concomitant]
  4. GLYBURIDE [Concomitant]
  5. ALLOPURINOL [Concomitant]
  6. DICLOFENAC SODIUM [Concomitant]
  7. GLUCOPHAGE [Concomitant]
  8. MONTELEUKAST SODIUM (MONTELEUKAST SODIUM) [Concomitant]
  9. HYTRIN [Concomitant]
  10. MULTIVITAMIN [Concomitant]

REACTIONS (3)
  - BLOOD GLUCOSE INCREASED [None]
  - DIZZINESS [None]
  - SOMNOLENCE [None]
